FAERS Safety Report 10271967 (Version 2)
Quarter: 2014Q3

REPORT INFORMATION
  Report Type: Spontaneous
  Country: AR (occurrence: AR)
  Receive Date: 20140702
  Receipt Date: 20140702
  Transmission Date: 20150326
  Serious: Yes (Other)
  Sender: FDA-Public Use
  Company Number: AR-ROCHE-1426291

PATIENT
  Age: 59 Year
  Sex: Female

DRUGS (6)
  1. HERCEPTIN [Suspect]
     Active Substance: TRASTUZUMAB
     Indication: BREAST CANCER
     Dosage: 8 MG /KG INITIAL DOSE AND THEN 6 MG/KG.?NUMBER OF CYCLES: 04
     Route: 042
     Dates: start: 20140203
  2. DOCETAXEL [Concomitant]
     Active Substance: DOCETAXEL
     Indication: BREAST CANCER
     Route: 065
     Dates: start: 20140203
  3. PACLITAXEL. [Concomitant]
     Active Substance: PACLITAXEL
     Dosage: NUMBER OF CYCLES: 42
     Route: 065
  4. PERTUZUMAB [Suspect]
     Active Substance: PERTUZUMAB
     Indication: BREAST CANCER
     Dosage: 840 MG INITIAL DOSE AND THEN 420 MG.?NUMBER OF CYCLES: 05
     Route: 065
     Dates: start: 20140224
  5. PERTUZUMAB [Suspect]
     Active Substance: PERTUZUMAB
     Route: 065
  6. HERCEPTIN [Suspect]
     Active Substance: TRASTUZUMAB
     Route: 042

REACTIONS (6)
  - Mucosal inflammation [Unknown]
  - Asthenia [Unknown]
  - Febrile neutropenia [Unknown]
  - Fatigue [Unknown]
  - Neutropenia [Unknown]
  - Alopecia [Unknown]
